FAERS Safety Report 8349122-3 (Version None)
Quarter: 2012Q2

REPORT INFORMATION
  Report Type: 
  Country: None (occurrence: None)
  Receive Date: 20120508
  Receipt Date: 20120430
  Transmission Date: 20120825
  Serious: No
  Sender: FDA-Public Use
  Company Number: 1268466

PATIENT
  Age: 65 Year
  Sex: Female
  Weight: 74 kg

DRUGS (12)
  1. HEPARIN [Concomitant]
  2. MAGNESIUM SULFATE [Concomitant]
  3. FLUOROURACIL [Concomitant]
  4. OXALIPLATIN [Suspect]
     Indication: COLORECTAL CANCER
     Dosage: 100 MG, STAT, INTRAVENOUS DRIP, 100 MG, STAT, INTRAVENOUS DRIP
     Route: 041
     Dates: start: 20120208, end: 20120208
  5. OXALIPLATIN [Suspect]
     Indication: COLORECTAL CANCER
     Dosage: 100 MG, STAT, INTRAVENOUS DRIP, 100 MG, STAT, INTRAVENOUS DRIP
     Route: 041
     Dates: start: 20120222, end: 20120222
  6. (TROPISETRON) [Concomitant]
  7. LEUCOVORIN CALCIUM [Concomitant]
  8. AVASTIN [Concomitant]
  9. SODIUM CHLORIDE [Concomitant]
  10. DEXAMETHASONE [Concomitant]
  11. CALCIUM GLUCONATE [Concomitant]
  12. DEXTROSE [Concomitant]

REACTIONS (7)
  - INFLUENZA LIKE ILLNESS [None]
  - EYE SWELLING [None]
  - NEUROPATHY PERIPHERAL [None]
  - ERYTHEMA [None]
  - RASH PRURITIC [None]
  - PARAESTHESIA [None]
  - RHINORRHOEA [None]
